FAERS Safety Report 4837219-1 (Version None)
Quarter: 2005Q4

REPORT INFORMATION
  Report Type: 
  Country: None (occurrence: None)
  Receive Date: 20051122
  Receipt Date: 20051107
  Transmission Date: 20060501
  Serious: Yes (Hospitalization)
  Sender: FDA-Public Use
  Company Number: USA0507103892

PATIENT
  Age: 75 Year
  Sex: Female

DRUGS (6)
  1. FORTEO [Suspect]
     Indication: OSTEOPOROSIS
     Dosage: 20 UG, DAILY (1/D)
     Dates: start: 20050716
  2. FORTEO [Suspect]
  3. SINEMET [Concomitant]
  4. CALCIUM (CALCIUM) [Concomitant]
  5. FORTEO PEN, 250MCG/ML (3ML) (FORTEO PEN 250MCG/ML (3ML)) [Concomitant]
  6. FORTEO PEN (250MCG/ML) (FORTEO PEN 250MCG/ML (3ML)) [Concomitant]

REACTIONS (12)
  - ABDOMINAL PAIN LOWER [None]
  - BLOOD CALCIUM INCREASED [None]
  - DIVERTICULITIS [None]
  - ERUCTATION [None]
  - GALLBLADDER DISORDER [None]
  - LIPASE INCREASED [None]
  - MEDICATION ERROR [None]
  - NERVOUSNESS [None]
  - OVERDOSE [None]
  - PHARMACEUTICAL PRODUCT COMPLAINT [None]
  - PRURITUS GENERALISED [None]
  - URINE OUTPUT INCREASED [None]
